FAERS Safety Report 21283573 (Version 1)
Quarter: 2022Q3

REPORT INFORMATION
  Report Type: Spontaneous
  Country: US (occurrence: None)
  Receive Date: 20220901
  Receipt Date: 20220901
  Transmission Date: 20221027
  Serious: No
  Sender: FDA-Public Use
  Company Number: None

PATIENT
  Sex: Female

DRUGS (1)
  1. TREMFYA [Suspect]
     Active Substance: GUSELKUMAB
     Indication: Psoriatic arthropathy
     Dosage: INJECT 1 PEN UNDER THE SKIN AT WEEK 0, THEN AT WEEK 4 THEN INJECT 1 PEN EVERY 8 WEEKS
     Route: 058
     Dates: start: 20220623

REACTIONS (1)
  - Therapy non-responder [None]
